FAERS Safety Report 9124235 (Version 1)
Quarter: 2013Q1

REPORT INFORMATION
  Report Type: Spontaneous
  Country: BR (occurrence: BR)
  Receive Date: 20130116
  Receipt Date: 20130116
  Transmission Date: 20140127
  Serious: Yes (Hospitalization, Other)
  Sender: FDA-Public Use
  Company Number: BR-ASTRAZENECA-2013SE02211

PATIENT
  Age: 2890 Week
  Sex: Male
  Weight: 80 kg

DRUGS (8)
  1. NEXIUM [Suspect]
     Indication: GASTRITIS
     Dosage: ?
     Route: 048
     Dates: start: 2012, end: 201212
  2. NEXIUM [Suspect]
     Indication: GASTRITIS PROPHYLAXIS
     Dosage: ?
     Route: 048
     Dates: start: 2012, end: 201212
  3. NEXIUM [Suspect]
     Indication: GASTRITIS
     Dosage: ?
     Route: 048
  4. NEXIUM [Suspect]
     Indication: GASTRITIS PROPHYLAXIS
     Dosage: ?
     Route: 048
  5. CORTICOSTEROID [Suspect]
     Indication: PAIN IN EXTREMITY
     Route: 065
     Dates: start: 201210
  6. CORTICOSTEROID [Suspect]
     Indication: ARTHRALGIA
     Route: 065
     Dates: start: 201210
  7. UNKNOWN [Concomitant]
     Indication: DIABETES MELLITUS
     Route: 048
     Dates: end: 201212
  8. UNKNOWN ANTIBIOTIC [Concomitant]

REACTIONS (5)
  - Pain in extremity [Recovering/Resolving]
  - Weight decreased [Recovered/Resolved]
  - Hyperglycaemia [Recovered/Resolved]
  - Arthralgia [Recovering/Resolving]
  - Diarrhoea [Recovered/Resolved]
